FAERS Safety Report 24411109 (Version 1)
Quarter: 2024Q4

REPORT INFORMATION
  Report Type: Spontaneous
  Country: RU (occurrence: RU)
  Receive Date: 20241008
  Receipt Date: 20241008
  Transmission Date: 20250115
  Serious: Yes (Other)
  Sender: SANDOZ
  Company Number: RU-SANDOZ-SDZ2024RU085386

PATIENT
  Sex: Female
  Weight: 75 kg

DRUGS (2)
  1. METHOTREXATE [Suspect]
     Active Substance: METHOTREXATE
     Indication: Rheumatoid arthritis
     Dosage: 10 MG X 1 TIME/WEEK S/C
     Route: 058
     Dates: start: 2015, end: 20241001
  2. Ilsira [Concomitant]
     Indication: Rheumatoid arthritis
     Dosage: 162 MG, QW
     Route: 058
     Dates: start: 202408

REACTIONS (4)
  - Dyspepsia [Recovering/Resolving]
  - Nausea [Recovering/Resolving]
  - Anaemia [Recovering/Resolving]
  - Drug ineffective [Recovering/Resolving]

NARRATIVE: CASE EVENT DATE: 20240918
